FAERS Safety Report 22192270 (Version 2)
Quarter: 2023Q2

REPORT INFORMATION
  Report Type: Spontaneous
  Country: CH (occurrence: CH)
  Receive Date: 20230410
  Receipt Date: 20230417
  Transmission Date: 20230722
  Serious: Yes (Other)
  Sender: FDA-Public Use
  Company Number: CH-MYLANLABS-2023M1036843

PATIENT
  Age: 56 Year
  Sex: Female

DRUGS (2)
  1. RELPAX [Suspect]
     Active Substance: ELETRIPTAN HYDROBROMIDE
     Indication: Migraine with aura
     Dosage: UNK (APPROXIMATELY 1X EVERY 3 MONTHS)
     Route: 065
     Dates: start: 2021
  2. MIRENA [Concomitant]
     Active Substance: LEVONORGESTREL
     Dosage: UNK
     Route: 065

REACTIONS (1)
  - Tunnel vision [Recovered/Resolved]
